FAERS Safety Report 10606834 (Version 2)
Quarter: 2014Q4

REPORT INFORMATION
  Report Type: Report from Study
  Country: US (occurrence: US)
  Receive Date: 20141125
  Receipt Date: 20141125
  Transmission Date: 20150529
  Serious: Yes (Hospitalization)
  Sender: FDA-Public Use
  Company Number: US-009507513-1406USA013024

PATIENT
  Age: 59 Year
  Sex: Female

DRUGS (14)
  1. COSOPT [Concomitant]
     Active Substance: DORZOLAMIDE HYDROCHLORIDE\TIMOLOL MALEATE
     Indication: GLAUCOMA
     Dosage: UNK, BID, ROUTE OF ADMINISTRATION: LEFT EYE, TOTAL DAILY DOSE: 2 GTT.
     Route: 047
     Dates: start: 20131213
  2. NEURONTIN [Concomitant]
     Active Substance: GABAPENTIN
     Indication: PAIN
     Dosage: 300 MG, AT NIGHT, TOTAL DAILY DOSE:300MG
     Route: 048
     Dates: start: 20130627
  3. MORPHINE [Concomitant]
     Active Substance: MORPHINE
     Indication: PAIN
     Dosage: UNK, Q4HR PRN
     Route: 048
     Dates: start: 20140505
  4. ALPHAGAN P [Concomitant]
     Active Substance: BRIMONIDINE TARTRATE
     Indication: GLAUCOMA
     Dosage: UNK, BID, ROUTE OF ADMINISTRATION: LEFT EYE, TOTAL DAILY DOSE: 2 GTT.
     Route: 047
     Dates: start: 20130830
  5. COMBIGAN [Concomitant]
     Active Substance: BRIMONIDINE TARTRATE\TIMOLOL MALEATE
     Indication: GLAUCOMA
     Dosage: UNK, BID, ROUTE OF ADMINISTRATION: LEFT EYE, TOTAL DAILY DOSE: 2 GTT.
     Route: 047
     Dates: start: 20130830
  6. KEPPRA [Concomitant]
     Active Substance: LEVETIRACETAM
     Indication: CONVULSION PROPHYLAXIS
     Dosage: UNK, BID, TOTAL DAILY DOSE: 1500MG
     Route: 048
     Dates: start: 20131112
  7. ZOFRAN [Concomitant]
     Active Substance: ONDANSETRON HYDROCHLORIDE
     Indication: NAUSEA
     Dosage: 8 MG, PRN, TOTAL DAILY DOSE: 8MG.
     Route: 048
     Dates: start: 20130727
  8. MS CONTIN [Concomitant]
     Active Substance: MORPHINE SULFATE
     Indication: PAIN
     Dosage: 30 MG, BID
     Route: 048
     Dates: start: 20130530
  9. SYNTHROID [Concomitant]
     Active Substance: LEVOTHYROXINE SODIUM
     Indication: HYPOTHYROIDISM
     Dosage: 75 MICROGRAM, QD
     Route: 048
     Dates: start: 20131002
  10. PRED FORTE [Concomitant]
     Active Substance: PREDNISOLONE ACETATE
     Indication: GLAUCOMA
     Dosage: UNK, BID, ROUTE OF ADMINISTRATION: LEFT EYE, TOTAL DAILY DOSE: 2 GTT.
     Route: 047
     Dates: start: 20130830
  11. FRAGMIN [Concomitant]
     Active Substance: DALTEPARIN SODIUM
     Indication: PULMONARY EMBOLISM
     Dosage: UNK, QD, STRENGTH AND TOTAL DAILY DOSE: 15000 UNITS.
     Route: 058
     Dates: start: 20131211
  12. LEXAPRO [Concomitant]
     Active Substance: ESCITALOPRAM OXALATE
     Indication: ANTIDEPRESSANT THERAPY
     Dosage: 10 MG, QD
     Route: 048
     Dates: start: 20130831
  13. PEMBROLIZUMAB. [Suspect]
     Active Substance: PEMBROLIZUMAB
     Indication: METASTATIC MALIGNANT MELANOMA
     Dosage: 2 MG/KG, Q3W, TOTAL DAILY DOSE: 142MG
     Route: 042
     Dates: start: 20140609, end: 201409
  14. PREDNISONE. [Concomitant]
     Active Substance: PREDNISONE
     Indication: PROPHYLAXIS
     Dosage: 5 MG, QD
     Route: 048
     Dates: start: 20140507

REACTIONS (6)
  - Diarrhoea [Recovered/Resolved]
  - Adrenal insufficiency [Not Recovered/Not Resolved]
  - Acute kidney injury [Recovered/Resolved]
  - Hyperkalaemia [Recovered/Resolved]
  - Anaemia [Not Recovered/Not Resolved]
  - Hypotension [Recovered/Resolved]

NARRATIVE: CASE EVENT DATE: 20140621
